FAERS Safety Report 6821746-1 (Version None)
Quarter: 2010Q3

REPORT INFORMATION
  Report Type: 
  Country: None (occurrence: None)
  Receive Date: 20100702
  Receipt Date: 20100622
  Transmission Date: 20110219
  Serious: Yes (Hospitalization)
  Sender: FDA-Public Use
  Company Number: AUR-APL-2010-01623

PATIENT
  Age: 56 Year
  Sex: Male

DRUGS (10)
  1. METFORMIN HCL [Suspect]
     Indication: DIABETES MELLITUS
     Dosage: TID - ORAL
     Route: 048
     Dates: start: 20000101, end: 20100124
  2. IPREN 200MG TABLET [Suspect]
     Indication: ANALGESIC THERAPY
     Dosage: 200MG - ORAL
     Route: 048
     Dates: start: 20100101, end: 20100124
  3. ALVEDON DISPERSIBLE TABLET [Suspect]
     Dosage: 125MG - ORAL
     Route: 048
     Dates: start: 20100101
  4. BYETTA [Suspect]
     Indication: DIABETES MELLITUS
     Dosage: 20 RGD - SUBQ
     Dates: start: 20090101, end: 20100124
  5. ENALAPRIL MALEATE [Suspect]
     Dosage: 1 DFD - ORAL
     Route: 048
     Dates: start: 20070301, end: 20100124
  6. INSULIN INJ [Concomitant]
  7. SIMVASTATIN [Concomitant]
  8. BEHEPAN [Concomitant]
  9. TENORMIN [Concomitant]
  10. TROMBYL [Concomitant]

REACTIONS (9)
  - ACIDOSIS [None]
  - DIALYSIS [None]
  - HEPATIC FAILURE [None]
  - HEPATIC STEATOSIS [None]
  - INFECTION [None]
  - INTERNATIONAL NORMALISED RATIO INCREASED [None]
  - LIVER INJURY [None]
  - PULMONARY HYPERTENSION [None]
  - RENAL FAILURE ACUTE [None]
